FAERS Safety Report 5097966-6 (Version None)
Quarter: 2006Q3

REPORT INFORMATION
  Report Type: 
  Country: None (occurrence: None)
  Receive Date: 20060905
  Receipt Date: 20060823
  Transmission Date: 20061208
  Serious: Yes (Hospitalization, Other)
  Sender: FDA-Public Use
  Company Number: GXKR2006AU05188

PATIENT
  Age: 48 Year
  Sex: Male

DRUGS (4)
  1. SULFADIAZINE [Suspect]
     Indication: TOXOPLASMOSIS
     Dosage: 1.5 G, QID, ORAL
     Route: 048
  2. BACTRIM [Suspect]
     Indication: PNEUMOCYSTIS JIROVECI INFECTION
     Dosage: 320 MG/1600 MG, QID, ORAL
     Route: 048
  3. PYRIMETHAMINE (PYRIMETHAMINE) [Concomitant]
  4. ENOXAPARIN (ENOXAPARIN, HEPARIN-FRACTION) [Concomitant]

REACTIONS (3)
  - CRYSTALLURIA [None]
  - HAEMATURIA [None]
  - RENAL FAILURE ACUTE [None]
